FAERS Safety Report 11279083 (Version 2)
Quarter: 2015Q3

REPORT INFORMATION
  Report Type: Spontaneous
  Country: JP (occurrence: None)
  Receive Date: 20150715
  Receipt Date: 20150817
  Transmission Date: 20151125
  Serious: No
  Sender: FDA-Public Use
  Company Number: PR 12106

PATIENT
  Age: 47 Year
  Sex: Male

DRUGS (3)
  1. AIPHAGAN (BRIMONIDINE TARTRATE) [Concomitant]
  2. TIMOLOL MALEATE. [Suspect]
     Active Substance: TIMOLOL MALEATE
     Indication: NORMAL TENSION GLAUCOMA
     Dates: start: 20150326
  3. ZIOPTAN [Suspect]
     Active Substance: TAFLUPROST
     Indication: NORMAL TENSION GLAUCOMA
     Dosage: 1 GTT,SINGLE (EVENING)
     Dates: start: 20150326

REACTIONS (1)
  - Blood pressure increased [None]

NARRATIVE: CASE EVENT DATE: 20150420
